FAERS Safety Report 17863724 (Version 1)
Quarter: 2020Q2

REPORT INFORMATION
  Report Type: Spontaneous
  Country: JP (occurrence: JP)
  Receive Date: 20200605
  Receipt Date: 20200605
  Transmission Date: 20200714
  Serious: Yes (Other)
  Sender: FDA-Public Use
  Company Number: JP-SUN PHARMACEUTICAL INDUSTRIES LTD-2020RR-249330

PATIENT
  Age: 51 Year
  Sex: Female

DRUGS (8)
  1. TADALAFIL. [Suspect]
     Active Substance: TADALAFIL
     Indication: PULMONARY ARTERIAL HYPERTENSION
     Dosage: UNK
     Route: 065
  2. EPOPROSTENOL. [Suspect]
     Active Substance: EPOPROSTENOL
     Indication: PULMONARY ARTERIAL HYPERTENSION
     Dosage: 0.25NG/KG/MIN, INCREASED DAILY BY 0.5 NG/KG/MIN
     Route: 042
  3. EPOPROSTENOL. [Suspect]
     Active Substance: EPOPROSTENOL
     Dosage: 27 NG/KG/MIN
     Route: 042
  4. MACITENTAN [Suspect]
     Active Substance: MACITENTAN
     Indication: PULMONARY ARTERIAL HYPERTENSION
     Route: 065
  5. DOBUTAMINE [Concomitant]
     Active Substance: DOBUTAMINE HYDROCHLORIDE
     Indication: PULMONARY ARTERIAL HYPERTENSION
     Dosage: UNK
     Route: 065
  6. EPOPROSTENOL. [Suspect]
     Active Substance: EPOPROSTENOL
     Dosage: 10 NG/KG/MIN, INCREASED BY 2 NG/KG/MIN EVERY WEEK
     Route: 042
  7. RIOCIGUAT. [Suspect]
     Active Substance: RIOCIGUAT
     Indication: PULMONARY ARTERIAL HYPERTENSION
     Dosage: UNK
     Route: 065
  8. EPOPROSTENOL. [Suspect]
     Active Substance: EPOPROSTENOL
     Dosage: 34.4NG/KG/MIN
     Route: 042

REACTIONS (11)
  - Thrombocytopenia [Unknown]
  - Venous occlusion [Unknown]
  - Pruritus [Unknown]
  - Hepatosplenomegaly [Not Recovered/Not Resolved]
  - Hepatocellular injury [Unknown]
  - Ascites [Unknown]
  - Anaemia [Unknown]
  - Fibrosis [Unknown]
  - Drug ineffective [Unknown]
  - Rash [Unknown]
  - Lip swelling [Unknown]
